FAERS Safety Report 12652455 (Version 1)
Quarter: 2016Q3

REPORT INFORMATION
  Report Type: Spontaneous
  Country: US (occurrence: US)
  Receive Date: 20160815
  Receipt Date: 20160815
  Transmission Date: 20161109
  Serious: No
  Sender: FDA-Public Use
  Company Number: US-PFIZER INC-2016378549

PATIENT
  Age: 27 Year
  Sex: Male
  Weight: 78.46 kg

DRUGS (6)
  1. VITAMIN D [Concomitant]
     Active Substance: CHOLECALCIFEROL
     Dosage: 50000 IU, WEEKLY (1 CAPSULE)
     Route: 048
  2. DEXTROAMPHETAMINE SACCHARATE, AMPHE [Concomitant]
     Dosage: 10 MG, 1X/DAY (1 TABLET DAILY IN THE AFTERNOON)
     Route: 048
  3. ALPRAZOLAM. [Concomitant]
     Active Substance: ALPRAZOLAM
     Dosage: 0.5 MG, AS NEEDED (1 TABLET, THREE TIMES DAILY, AS NEEDED)
     Route: 048
  4. DEXTROAMPHETAMINE SACCHARATE, AMPHE/01345401/ [Concomitant]
     Active Substance: AMPHETAMINE ASPARTATE\AMPHETAMINE SULFATE\DEXTROAMPHETAMINE SACCHARATE\DEXTROAMPHETAMINE SULFATE
     Dosage: 25 MG, DAILY
     Route: 048
  5. ACETAMINOPHEN W/HYDROCODONE [Concomitant]
     Active Substance: ACETAMINOPHEN\HYDROCODONE
     Dosage: 1 DF, AS NEEDED (5-325 MG, 1 TABLET, ORAL THREE TIMES DAILY, AS NEEDED)
     Route: 048
  6. LYRICA [Suspect]
     Active Substance: PREGABALIN
     Indication: FIBROMYALGIA
     Dosage: 300 MG, 2X/DAY
     Route: 048

REACTIONS (2)
  - Flank pain [Unknown]
  - Prescribed overdose [Unknown]
